FAERS Safety Report 6764274-4 (Version None)
Quarter: 2010Q2

REPORT INFORMATION
  Report Type: 
  Country: None (occurrence: None)
  Receive Date: 20100610
  Receipt Date: 20100429
  Transmission Date: 20101027
  Serious: No
  Sender: FDA-Public Use
  Company Number: US-BAXTER-2010BH003615

PATIENT
  Age: 33 Year
  Sex: Male
  Weight: 291 kg

DRUGS (6)
  1. HEPARIN SODIUM INJECTION [Suspect]
     Indication: HAEMODIALYSIS
     Route: 042
     Dates: start: 20080116, end: 20080116
  2. HEPARIN SODIUM INJECTION [Suspect]
     Route: 042
     Dates: start: 20080116, end: 20080116
  3. HEPARIN SODIUM INJECTION [Suspect]
     Route: 042
     Dates: start: 20080325, end: 20080325
  4. HEPARIN SODIUM INJECTION [Suspect]
     Route: 042
     Dates: start: 20080325, end: 20080325
  5. COREG [Concomitant]
     Indication: DRUG USE FOR UNKNOWN INDICATION
     Route: 065
  6. NORVASC [Concomitant]
     Indication: DRUG USE FOR UNKNOWN INDICATION
     Route: 065

REACTIONS (6)
  - BLOOD PRESSURE DECREASED [None]
  - CHEST DISCOMFORT [None]
  - DIZZINESS [None]
  - DYSPNOEA [None]
  - NEUROPATHY PERIPHERAL [None]
  - RASH [None]
